FAERS Safety Report 11335474 (Version 1)
Quarter: 2015Q3

REPORT INFORMATION
  Report Type: Spontaneous
  Country: US (occurrence: None)
  Receive Date: 20150731
  Receipt Date: 20150731
  Transmission Date: 20151125
  Serious: Yes (Hospitalization)
  Sender: FDA-Public Use
  Company Number: None

PATIENT
  Age: 22 Year
  Sex: Female

DRUGS (2)
  1. PEG TUBE [Concomitant]
  2. SUTENT [Suspect]
     Active Substance: SUNITINIB MALATE
     Indication: NEOPLASM MALIGNANT
     Route: 048
     Dates: start: 20150626

REACTIONS (4)
  - Dermatitis contact [None]
  - Fall [None]
  - Head injury [None]
  - Seizure [None]

NARRATIVE: CASE EVENT DATE: 20150729
